FAERS Safety Report 18547575 (Version 3)
Quarter: 2021Q1

REPORT INFORMATION
  Report Type: Report from Study
  Country: US (occurrence: US)
  Receive Date: 20201125
  Receipt Date: 20210208
  Transmission Date: 20210419
  Serious: Yes (Death, Life-Threatening, Disabling, Other)
  Sender: FDA-Public Use
  Company Number: US-GILEAD-2020-0493131

PATIENT
  Age: 65 Year
  Sex: Female
  Weight: 67 kg

DRUGS (97)
  1. REMDESIVIR. [Suspect]
     Active Substance: REMDESIVIR
     Indication: COVID-19 PNEUMONIA
     Dosage: 250 ML, MOST RECENT DOSE OF REMDESIVIR PRIOR TO EVENT ONSET: 17/AUG/2020 AT 13:58
     Route: 042
     Dates: start: 20200808
  2. SENOKOT [Concomitant]
     Active Substance: SENNOSIDES
     Indication: CONSTIPATION
     Dates: start: 20200812
  3. LEVOPHED [Concomitant]
     Active Substance: NOREPINEPHRINE BITARTRATE
     Dosage: DOSE: 60 OTHER
     Dates: start: 20200819, end: 20200826
  4. KLOR?CON [Concomitant]
     Active Substance: POTASSIUM CHLORIDE
     Dosage: AS PER PROTOCOL.DOSE: 20 OTHER
     Dates: start: 20200812, end: 20200923
  5. NOVOLIN R [Concomitant]
     Active Substance: INSULIN HUMAN
     Indication: TYPE 2 DIABETES MELLITUS
     Dosage: DOSE: 4.3 OTHER
     Dates: start: 20200820, end: 20200822
  6. REGLAN [Concomitant]
     Active Substance: METOCLOPRAMIDE HYDROCHLORIDE
     Dosage: FOR GERD PROPHYLAXIS
     Dates: start: 20200903, end: 20200911
  7. ACTIVASE [Concomitant]
     Active Substance: ALTEPLASE
     Dosage: FOR BLOOD CLOT PROPHYLAXIS
     Dates: start: 20200826, end: 20200826
  8. ALBUMIN [Concomitant]
     Active Substance: ALBUMIN HUMAN
     Dosage: FOR FLUID RETENTION
     Dates: start: 20200830, end: 20200903
  9. OXYGEN. [Concomitant]
     Active Substance: OXYGEN
     Dosage: 60L/MIN
     Route: 007
     Dates: start: 20200808
  10. OXYGEN. [Concomitant]
     Active Substance: OXYGEN
     Dates: start: 20200812
  11. OXYGEN. [Concomitant]
     Active Substance: OXYGEN
     Route: 007
     Dates: start: 20200829
  12. OXYGEN. [Concomitant]
     Active Substance: OXYGEN
     Route: 007
     Dates: start: 20200822
  13. OXYGEN. [Concomitant]
     Active Substance: OXYGEN
     Route: 007
     Dates: start: 20200823
  14. OXYGEN. [Concomitant]
     Active Substance: OXYGEN
     Dates: start: 20200817
  15. OXYGEN. [Concomitant]
     Active Substance: OXYGEN
     Route: 007
     Dates: start: 20200826
  16. OXYGEN. [Concomitant]
     Active Substance: OXYGEN
     Route: 007
     Dates: start: 20200824
  17. OXYGEN. [Concomitant]
     Active Substance: OXYGEN
     Dosage: 60L/MIN
     Route: 055
     Dates: start: 20200811
  18. PEPCID [Concomitant]
     Active Substance: FAMOTIDINE
     Dosage: FOR STOMACH ULCER PROPHYLAXIS
     Dates: start: 20200819, end: 20200829
  19. DIPRIVAN [Concomitant]
     Active Substance: PROPOFOL
     Dosage: DOSE: 60 OTHER
     Dates: start: 20200905, end: 20200923
  20. SODIUM PHOSPHATE [Concomitant]
     Active Substance: SODIUM PHOSPHATE
     Dosage: AS PER PROTOCOL.DOSE: 42 OTHER
     Dates: start: 20200807, end: 20200923
  21. OXYGEN. [Concomitant]
     Active Substance: OXYGEN
     Dosage: 55L/MIN
     Route: 055
     Dates: start: 20200809
  22. OXYGEN. [Concomitant]
     Active Substance: OXYGEN
     Dosage: 60L/MIN
     Route: 055
     Dates: start: 20200812
  23. TOCILIZUMAB. [Suspect]
     Active Substance: TOCILIZUMAB
     Indication: COVID-19 PNEUMONIA
     Dosage: AT 16:11
     Route: 042
     Dates: start: 20200808
  24. LOVENOX [Concomitant]
     Active Substance: ENOXAPARIN SODIUM
     Dosage: FOR DVT (DEEP VEIN THROMBOSIS) PROPHYLAXIS.
     Dates: start: 20200816, end: 20200817
  25. LANTUS [Concomitant]
     Active Substance: INSULIN GLARGINE
     Indication: TYPE 2 DIABETES MELLITUS
     Dosage: 15 UNITS
     Dates: start: 20200808, end: 20200809
  26. LEVOPHED [Concomitant]
     Active Substance: NOREPINEPHRINE BITARTRATE
     Dosage: DOSE : 5 OTHER
     Dates: start: 20200902, end: 20200902
  27. DEXTROSE. [Concomitant]
     Active Substance: DEXTROSE
     Indication: HYPERKALAEMIA
     Dosage: DOSE: 20 OTHER
     Dates: start: 20200814, end: 20200815
  28. DILAUDID [Concomitant]
     Active Substance: HYDROMORPHONE HYDROCHLORIDE
     Indication: PAIN
     Dosage: .8 MG
     Dates: start: 20200904, end: 20200923
  29. OXYGEN. [Concomitant]
     Active Substance: OXYGEN
     Dates: start: 20200818
  30. OXYGEN. [Concomitant]
     Active Substance: OXYGEN
     Dates: start: 20200809
  31. OXYGEN. [Concomitant]
     Active Substance: OXYGEN
     Route: 007
     Dates: start: 20200827
  32. OXYGEN. [Concomitant]
     Active Substance: OXYGEN
     Route: 007
     Dates: start: 20200901
  33. OXYGEN. [Concomitant]
     Active Substance: OXYGEN
     Route: 007
     Dates: start: 20200826
  34. OXYGEN. [Concomitant]
     Active Substance: OXYGEN
     Route: 007
     Dates: start: 20200825
  35. OXYGEN. [Concomitant]
     Active Substance: OXYGEN
     Route: 007
     Dates: start: 20200830
  36. OXYGEN. [Concomitant]
     Active Substance: OXYGEN
     Dates: start: 20200816
  37. OXYGEN. [Concomitant]
     Active Substance: OXYGEN
     Route: 007
     Dates: start: 20200901
  38. OXYGEN. [Concomitant]
     Active Substance: OXYGEN
     Dates: start: 20200810
  39. HUMALOG [Concomitant]
     Active Substance: INSULIN LISPRO
     Indication: TYPE 2 DIABETES MELLITUS
     Dosage: 6 UNITS
     Dates: start: 20200807, end: 20200808
  40. DIPRIVAN [Concomitant]
     Active Substance: PROPOFOL
     Indication: SEDATION
     Dosage: DOSE: 60 OTHER
     Dates: start: 20200819, end: 20200901
  41. ARIXTRA [Concomitant]
     Active Substance: FONDAPARINUX SODIUM
     Dosage: AS BLOOD CLOT PROPHYLAXIS
     Dates: start: 20200825, end: 20200827
  42. OXYGEN. [Concomitant]
     Active Substance: OXYGEN
     Dates: start: 20200813
  43. OXYGEN. [Concomitant]
     Active Substance: OXYGEN
     Route: 007
     Dates: start: 20200819
  44. OXYGEN. [Concomitant]
     Active Substance: OXYGEN
     Route: 007
     Dates: start: 20200820
  45. OXYGEN. [Concomitant]
     Active Substance: OXYGEN
     Dosage: 60L/MIN
     Route: 055
     Dates: start: 20200816
  46. OXYGEN. [Concomitant]
     Active Substance: OXYGEN
     Dates: start: 20200811
  47. OXYGEN. [Concomitant]
     Active Substance: OXYGEN
     Dosage: 554L/MIN
     Route: 055
     Dates: start: 20200807
  48. OXYGEN. [Concomitant]
     Active Substance: OXYGEN
     Route: 007
     Dates: start: 20200828
  49. OXYGEN. [Concomitant]
     Active Substance: OXYGEN
     Route: 007
     Dates: start: 20200821
  50. OXYGEN. [Concomitant]
     Active Substance: OXYGEN
     Route: 007
     Dates: start: 20200818
  51. OXYGEN. [Concomitant]
     Active Substance: OXYGEN
     Route: 007
     Dates: start: 20200827
  52. OXYGEN. [Concomitant]
     Active Substance: OXYGEN
     Dosage: 60L/MIN
     Route: 055
     Dates: start: 20200808
  53. OXYGEN. [Concomitant]
     Active Substance: OXYGEN
     Route: 007
     Dates: start: 20200829
  54. DECADRON [Concomitant]
     Active Substance: DEXAMETHASONE
     Indication: ACUTE RESPIRATORY FAILURE
     Dates: start: 20200807, end: 20200816
  55. LANTUS [Concomitant]
     Active Substance: INSULIN GLARGINE
     Dosage: 35 UNITS
     Dates: start: 20200810, end: 20200813
  56. NIMBEX [Concomitant]
     Active Substance: CISATRACURIUM BESYLATE
     Indication: SEDATION
     Dosage: DOSE: 37.5 OTHER
     Dates: start: 20200820, end: 20200901
  57. MAGNESIUM SULFATE. [Concomitant]
     Active Substance: MAGNESIUM SULFATE
     Dosage: AS PER PROTOCOL
     Dates: start: 20200807, end: 20200823
  58. TYLENOL [Concomitant]
     Active Substance: ACETAMINOPHEN
     Indication: PAIN
     Dosage: 650 MG
     Dates: start: 20200819, end: 20200914
  59. ANCEF [Concomitant]
     Active Substance: CEFAZOLIN SODIUM
     Indication: PNEUMONIA
     Dosage: 2 G
     Dates: start: 20200823, end: 20200826
  60. TRIAD [Concomitant]
     Active Substance: ACETAMINOPHEN\BUTALBITAL\CAFFEINE
     Dosage: FOR PERI?ANAL MOISTURE DAMAGE
     Dates: start: 20200828
  61. ZOFRAN [Concomitant]
     Active Substance: ONDANSETRON HYDROCHLORIDE
     Indication: NAUSEA
     Dosage: 4 MG
     Dates: start: 20200807, end: 20200923
  62. OXYGEN. [Concomitant]
     Active Substance: OXYGEN
     Dates: start: 20200814
  63. OXYGEN. [Concomitant]
     Active Substance: OXYGEN
     Route: 007
     Dates: start: 20200831
  64. OXYGEN. [Concomitant]
     Active Substance: OXYGEN
     Route: 007
     Dates: start: 20200822
  65. OXYGEN. [Concomitant]
     Active Substance: OXYGEN
     Route: 007
     Dates: start: 20200821
  66. OXYGEN. [Concomitant]
     Active Substance: OXYGEN
     Route: 007
     Dates: start: 20200824
  67. OXYGEN. [Concomitant]
     Active Substance: OXYGEN
     Route: 007
     Dates: start: 20200823
  68. OXYGEN. [Concomitant]
     Active Substance: OXYGEN
     Dosage: 85 %
     Route: 007
     Dates: start: 20200820
  69. OXYGEN. [Concomitant]
     Active Substance: OXYGEN
     Dosage: 60L/MIN
     Route: 055
     Dates: start: 20200808
  70. MIRALAX [Concomitant]
     Active Substance: POLYETHYLENE GLYCOL 3350
     Indication: CONSTIPATION
     Dates: start: 20200812
  71. OXYGEN. [Concomitant]
     Active Substance: OXYGEN
     Dates: start: 20200810
  72. OXYGEN. [Concomitant]
     Active Substance: OXYGEN
     Route: 007
     Dates: start: 20200830
  73. OXYGEN. [Concomitant]
     Active Substance: OXYGEN
     Route: 007
     Dates: start: 20200831
  74. OXYGEN. [Concomitant]
     Active Substance: OXYGEN
     Route: 007
     Dates: start: 20200819
  75. OXYGEN. [Concomitant]
     Active Substance: OXYGEN
     Dosage: 60L/MIN
     Route: 055
     Dates: start: 20200814
  76. LOVENOX [Concomitant]
     Active Substance: ENOXAPARIN SODIUM
     Dosage: 40 MG, QD
     Dates: start: 20200809, end: 20200816
  77. LOVENOX [Concomitant]
     Active Substance: ENOXAPARIN SODIUM
     Dates: start: 20200818, end: 20200825
  78. LEVOPHED [Concomitant]
     Active Substance: NOREPINEPHRINE BITARTRATE
     Indication: HYPOTENSION
     Dosage: 8 OTHER
     Dates: start: 20200907, end: 20200911
  79. PERIDEX [CHLORHEXIDINE GLUCONATE] [Concomitant]
     Dosage: FOR ORAL HYGIENE
     Dates: start: 20200819, end: 20200916
  80. OMNIPAQUE [Concomitant]
     Active Substance: IOHEXOL
     Dosage: AS CONTRAST AGENT
     Dates: start: 20200816, end: 20200816
  81. OXYGEN. [Concomitant]
     Active Substance: OXYGEN
     Dates: start: 20200815
  82. OXYGEN. [Concomitant]
     Active Substance: OXYGEN
     Dates: start: 20200817
  83. OXYGEN. [Concomitant]
     Active Substance: OXYGEN
     Dates: start: 20200815
  84. OXYGEN. [Concomitant]
     Active Substance: OXYGEN
     Route: 007
     Dates: start: 20200822
  85. ZYPREXA [Concomitant]
     Active Substance: OLANZAPINE
     Indication: ENCEPHALOPATHY
     Dates: start: 20200917, end: 20200919
  86. ZYPREXA [Concomitant]
     Active Substance: OLANZAPINE
     Dates: start: 20200920, end: 20200920
  87. LOVENOX [Concomitant]
     Active Substance: ENOXAPARIN SODIUM
     Indication: THROMBOSIS PROPHYLAXIS
     Dates: start: 20200807, end: 20200809
  88. LASIX [Concomitant]
     Active Substance: FUROSEMIDE
     Dates: start: 20200814, end: 20200817
  89. LASIX [Concomitant]
     Active Substance: FUROSEMIDE
     Dates: start: 20200811, end: 20200812
  90. HUMALOG [Concomitant]
     Active Substance: INSULIN LISPRO
     Dosage: 12 UNITS
     Dates: start: 20200808, end: 20200816
  91. FENTANYL. [Concomitant]
     Active Substance: FENTANYL
     Indication: PAIN
     Dosage: DOSE: 25 OTHER
     Dates: start: 20200820, end: 20200901
  92. PRECEDEX [Concomitant]
     Active Substance: DEXMEDETOMIDINE HYDROCHLORIDE
     Indication: SEDATION
     Dosage: DOSE: 1 OTHER
     Dates: start: 20200819, end: 20200901
  93. ALBUMIN (HUMAN) [Concomitant]
     Active Substance: ALBUMIN HUMAN
  94. REGLAN [Concomitant]
     Active Substance: METOCLOPRAMIDE HYDROCHLORIDE
     Dosage: FOR GERD PROPHYLAXIS
     Dates: start: 20200830, end: 20200830
  95. OXYGEN. [Concomitant]
     Active Substance: OXYGEN
     Route: 007
     Dates: start: 20200828
  96. OXYGEN. [Concomitant]
     Active Substance: OXYGEN
     Dates: start: 20200810
  97. OXYGEN. [Concomitant]
     Active Substance: OXYGEN
     Dosage: 60L/MIN
     Route: 055
     Dates: start: 20200813

REACTIONS (6)
  - Sepsis [Recovered/Resolved]
  - Subcutaneous emphysema [Not Recovered/Not Resolved]
  - Pneumomediastinum [Not Recovered/Not Resolved]
  - COVID-19 pneumonia [Fatal]
  - Sepsis [Recovered/Resolved]
  - Encephalopathy [Not Recovered/Not Resolved]

NARRATIVE: CASE EVENT DATE: 20200820
